FAERS Safety Report 20738894 (Version 1)
Quarter: 2022Q2

REPORT INFORMATION
  Report Type: Spontaneous
  Country: JP (occurrence: JP)
  Receive Date: 20220422
  Receipt Date: 20220422
  Transmission Date: 20220721
  Serious: Yes (Other)
  Sender: FDA-Public Use
  Company Number: JP-LUPIN PHARMACEUTICALS INC.-2022-06007

PATIENT
  Age: 39 Year
  Sex: Male
  Weight: 75 kg

DRUGS (9)
  1. ESCITALOPRAM [Suspect]
     Active Substance: ESCITALOPRAM OXALATE
     Indication: Major depression
     Dosage: 10 MG, QD
     Route: 065
  2. LORAZEPAM [Suspect]
     Active Substance: LORAZEPAM
     Indication: Major depression
     Dosage: 1.5 MG, QD
     Route: 065
  3. ZOLPIDEM [Suspect]
     Active Substance: ZOLPIDEM TARTRATE
     Indication: Insomnia
     Dosage: 10 MG, QD
     Route: 065
  4. BROTIZOLAM [Suspect]
     Active Substance: BROTIZOLAM
     Indication: Major depression
     Dosage: 0.25 MG, QD
     Route: 065
  5. SUVOREXANT [Suspect]
     Active Substance: SUVOREXANT
     Indication: Insomnia
     Dosage: 20 MG, QD
     Route: 065
  6. ROTIGOTINE [Concomitant]
     Active Substance: ROTIGOTINE
     Indication: Major depression
     Dosage: 2.25 MILLIGRAM, QD
     Route: 062
  7. ROTIGOTINE [Concomitant]
     Active Substance: ROTIGOTINE
     Dosage: 3.375 MILLIGRAM, QD
     Route: 062
  8. ROTIGOTINE [Concomitant]
     Active Substance: ROTIGOTINE
     Dosage: 2.5 MILLIGRAM, QD
     Route: 062
  9. ROTIGOTINE [Concomitant]
     Active Substance: ROTIGOTINE
     Dosage: 6.75 MILLIGRAM, QD
     Route: 062

REACTIONS (3)
  - Drug ineffective [Unknown]
  - Drug ineffective for unapproved indication [None]
  - Off label use [Unknown]
